FAERS Safety Report 22305822 (Version 1)
Quarter: 2023Q2

REPORT INFORMATION
  Report Type: Other
  Country: US (occurrence: US)
  Receive Date: 20230511
  Receipt Date: 20230511
  Transmission Date: 20230721
  Serious: Yes (Death, Hospitalization)
  Sender: FDA-Public Use
  Company Number: US-ALVOGEN-2023091431

PATIENT
  Age: 55 Year
  Sex: Male

DRUGS (2)
  1. MINOCYCLINE [Suspect]
     Active Substance: MINOCYCLINE HYDROCHLORIDE
     Indication: Osteomyelitis chronic
  2. TRIMETHOPRIM SULFAMETHOXAZOLE [Concomitant]
     Indication: Osteomyelitis chronic

REACTIONS (1)
  - Drug-induced liver injury [Fatal]
